FAERS Safety Report 11304251 (Version 1)
Quarter: 2015Q3

REPORT INFORMATION
  Report Type: Spontaneous
  Country: US (occurrence: US)
  Receive Date: 20150723
  Receipt Date: 20150723
  Transmission Date: 20151125
  Serious: No
  Sender: FDA-Public Use
  Company Number: US-JNJFOC-20131112998

PATIENT
  Age: 59 Year
  Sex: Female

DRUGS (11)
  1. CALMS FORTE [Concomitant]
     Indication: SLEEP DISORDER
     Route: 065
  2. GAVISCON TABLET [Concomitant]
     Indication: PRODUCT USED FOR UNKNOWN INDICATION
     Route: 065
  3. PEPCID AC MAXIMUM STRENGTH [Suspect]
     Active Substance: FAMOTIDINE
     Indication: HYPERCHLORHYDRIA
     Route: 048
     Dates: start: 20131113
  4. TAGAMET [Concomitant]
     Active Substance: CIMETIDINE
     Indication: PRODUCT USED FOR UNKNOWN INDICATION
     Route: 065
  5. PEPCID AC MAXIMUM STRENGTH [Suspect]
     Active Substance: FAMOTIDINE
     Route: 048
  6. OMEPRAZOLE. [Concomitant]
     Active Substance: OMEPRAZOLE
     Indication: GASTROOESOPHAGEAL REFLUX DISEASE
     Route: 065
     Dates: start: 201311
  7. PEPCID COMPLETE ACID REDUCER + ANTACID CHEWABLE TABLET (COOL MINT) [Concomitant]
     Indication: GASTROOESOPHAGEAL REFLUX DISEASE
     Route: 065
     Dates: start: 20131116
  8. PREVACID [Concomitant]
     Active Substance: LANSOPRAZOLE
     Indication: PRODUCT USED FOR UNKNOWN INDICATION
     Route: 065
  9. PRILOSEC [Concomitant]
     Active Substance: OMEPRAZOLE MAGNESIUM
     Indication: GASTROOESOPHAGEAL REFLUX DISEASE
     Route: 065
  10. TONICS [Concomitant]
     Active Substance: UNSPECIFIED INGREDIENT
     Indication: ANXIETY
     Route: 065
  11. TONICS [Concomitant]
     Active Substance: UNSPECIFIED INGREDIENT
     Indication: STRESS
     Route: 065

REACTIONS (5)
  - Choking sensation [Not Recovered/Not Resolved]
  - Drug ineffective [Unknown]
  - Cough [Unknown]
  - Drug administration error [Unknown]
  - Retching [Recovered/Resolved]

NARRATIVE: CASE EVENT DATE: 20131114
